FAERS Safety Report 7124331-X (Version None)
Quarter: 2010Q4

REPORT INFORMATION
  Report Type: 
  Country: None (occurrence: None)
  Receive Date: 20101126
  Receipt Date: 20101117
  Transmission Date: 20110411
  Serious: Yes (Other)
  Sender: FDA-Public Use
  Company Number: PHHY2010FR79068

PATIENT
  Age: 84 Year
  Sex: Male

DRUGS (3)
  1. LESCOL [Suspect]
     Indication: HYPERCHOLESTEROLAEMIA
     Dosage: 1 DF, QD
     Route: 048
     Dates: end: 20100601
  2. SECTRAL [Concomitant]
     Dosage: UNK
  3. COSOPT [Concomitant]
     Dosage: UNK

REACTIONS (4)
  - GAIT DISTURBANCE [None]
  - NEUROPATHY PERIPHERAL [None]
  - SCIATICA [None]
  - SENSORY LOSS [None]
